FAERS Safety Report 7854282 (Version 3)
Quarter: 2013Q3

REPORT INFORMATION
  Report Type: Report from Study
  Country: UG (occurrence: UG)
  Receive Date: 20110314
  Receipt Date: 20130830
  Transmission Date: 20140515
  Serious: Yes (Death)
  Sender: FDA-Public Use
  Company Number: UG-ABBOTT-11P-165-0710508-00

PATIENT
  Age: 32 Year
  Sex: Male

DRUGS (3)
  1. ALUVIA TABLETS [Suspect]
     Indication: HIV INFECTION
     Route: 048
     Dates: start: 20110111, end: 20110210
  2. RALTEGRAVIR [Concomitant]
     Indication: HIV INFECTION
     Dates: start: 20110111, end: 20110210
  3. COTRIMOXAZOLE [Concomitant]
     Indication: PRODUCT USED FOR UNKNOWN INDICATION
     Dates: start: 20091023, end: 20110210

REACTIONS (4)
  - Sepsis [Fatal]
  - Shock [Fatal]
  - Bronchopneumonia [Fatal]
  - Bronchopulmonary aspergillosis [Fatal]
